FAERS Safety Report 25252135 (Version 1)
Quarter: 2025Q2

REPORT INFORMATION
  Report Type: Spontaneous
  Country: FR (occurrence: FR)
  Receive Date: 20250429
  Receipt Date: 20250429
  Transmission Date: 20250716
  Serious: Yes (Hospitalization)
  Sender: BRISTOL-MYERS SQUIBB COMPANY
  Company Number: None

PATIENT
  Age: 72 Year
  Sex: Female
  Weight: 92 kg

DRUGS (2)
  1. OPDIVO [Suspect]
     Active Substance: NIVOLUMAB
     Indication: Metastatic malignant melanoma
     Dosage: 5 CURES
     Route: 042
     Dates: start: 20240716, end: 20240909
  2. OPDIVO [Suspect]
     Active Substance: NIVOLUMAB
     Dosage: 4 CURES
     Route: 042
     Dates: start: 20241007, end: 20241230

REACTIONS (4)
  - Eczema [Recovering/Resolving]
  - Dermatitis acneiform [Recovering/Resolving]
  - Cheilitis [Recovering/Resolving]
  - Dry mouth [Recovering/Resolving]

NARRATIVE: CASE EVENT DATE: 20250226
